FAERS Safety Report 23966923 (Version 3)
Quarter: 2025Q2

REPORT INFORMATION
  Report Type: Report from Study
  Country: US (occurrence: US)
  Receive Date: 20240612
  Receipt Date: 20250618
  Transmission Date: 20250716
  Serious: No
  Sender: AGIOS PHARMACEUTICALS
  Company Number: US-AGIOS-2406US03783

PATIENT
  Sex: Female

DRUGS (1)
  1. MITAPIVAT [Suspect]
     Active Substance: MITAPIVAT
     Indication: Pyruvate kinase deficiency anaemia
     Route: 048
     Dates: start: 20220328

REACTIONS (4)
  - Contusion [Unknown]
  - Impaired healing [Unknown]
  - Bleeding time prolonged [Unknown]
  - Coagulopathy [Unknown]
